FAERS Safety Report 6641592-1 (Version None)
Quarter: 2010Q1

REPORT INFORMATION
  Report Type: 
  Country: None (occurrence: None)
  Receive Date: 20100318
  Receipt Date: 20100308
  Transmission Date: 20100710
  Serious: Yes (Other)
  Sender: FDA-Public Use
  Company Number: US-JNJFOC-20100303333

PATIENT
  Age: 61 Year
  Sex: Male
  Weight: 82.56 kg

DRUGS (4)
  1. MOTRIN IB [Suspect]
     Route: 048
  2. MOTRIN IB [Suspect]
     Indication: PAIN
     Route: 048
  3. ASPIRIN [Suspect]
     Indication: PAIN
  4. VICODIN [Suspect]
     Indication: PAIN

REACTIONS (4)
  - BLOOD IRON INCREASED [None]
  - HAEMORRHAGE [None]
  - INCORRECT DOSE ADMINISTERED [None]
  - ULCER [None]
